FAERS Safety Report 16123911 (Version 2)
Quarter: 2019Q2

REPORT INFORMATION
  Report Type: Report from Study
  Country: US (occurrence: US)
  Receive Date: 20190327
  Receipt Date: 20190423
  Transmission Date: 20190711
  Serious: Yes (Hospitalization)
  Sender: FDA-Public Use
  Company Number: US-ACTELION-A-US2019-187999

PATIENT
  Age: 16 Year
  Sex: Female

DRUGS (4)
  1. DIGOX [Concomitant]
     Active Substance: DIGOXIN
     Dosage: 250 MCG, QD
     Dates: start: 20190123
  2. OPSUMIT [Suspect]
     Active Substance: MACITENTAN
     Indication: PULMONARY ARTERIAL HYPERTENSION
     Dosage: 10 MG, QD
     Route: 048
     Dates: start: 20190201
  3. TADALAFIL. [Concomitant]
     Active Substance: TADALAFIL
     Dosage: 250 MG, QD
     Dates: start: 20190119
  4. OXYGEN. [Concomitant]
     Active Substance: OXYGEN
     Dosage: VIA NASAL CANNULA

REACTIONS (5)
  - Oxygen therapy [Unknown]
  - Back pain [Not Recovered/Not Resolved]
  - Epistaxis [Not Recovered/Not Resolved]
  - Pain [Unknown]
  - Haematemesis [Not Recovered/Not Resolved]

NARRATIVE: CASE EVENT DATE: 20190215
